FAERS Safety Report 8332125-2 (Version None)
Quarter: 2012Q2

REPORT INFORMATION
  Report Type: 
  Country: None (occurrence: None)
  Receive Date: 20120502
  Receipt Date: 20120426
  Transmission Date: 20120825
  Serious: Yes (Death, Hospitalization)
  Sender: FDA-Public Use
  Company Number: US-AMGEN-USASP2012023797

PATIENT
  Age: 78 Year
  Sex: Male
  Weight: 111 kg

DRUGS (9)
  1. ARANESP [Suspect]
     Dosage: 300 MUG, Q2WK
     Dates: start: 20111228
  2. PLAVIX [Concomitant]
     Indication: ANTICOAGULANT THERAPY
     Dosage: 75 MG, QD
     Route: 048
  3. GLUCOTROL [Concomitant]
     Indication: DIABETES MELLITUS
     Dosage: 10 MG, BID
     Route: 048
  4. ASPIRIN [Concomitant]
     Dosage: 81 MG, QD
     Route: 048
  5. TENORMIN [Concomitant]
     Indication: HYPERTENSION
     Dosage: 50 MG, QHS
     Route: 048
  6. ADVAIR DISKUS 100/50 [Concomitant]
     Indication: ASTHMA
     Dosage: UNK UNK, BID
     Route: 055
  7. ARANESP [Suspect]
     Indication: PRODUCT USED FOR UNKNOWN INDICATION
     Dosage: 200 MUG, Q2WK
     Route: 058
     Dates: start: 20111101, end: 20111228
  8. ACTOS [Concomitant]
     Indication: DIABETES MELLITUS
     Dosage: 30 MG, QD
     Route: 048
  9. IMDUR [Concomitant]
     Indication: CHEST PAIN
     Dosage: 30 MG, BID
     Route: 048

REACTIONS (15)
  - RESPIRATORY FAILURE [None]
  - ANAEMIA [None]
  - LOSS OF CONSCIOUSNESS [None]
  - LUNG INFILTRATION [None]
  - ACUTE RESPIRATORY DISTRESS SYNDROME [None]
  - MYOCARDIAL INFARCTION [None]
  - FALL [None]
  - MULTI-ORGAN DISORDER [None]
  - ATRIAL FIBRILLATION [None]
  - RENAL FAILURE [None]
  - ASPIRATION [None]
  - CARDIO-RESPIRATORY ARREST [None]
  - METABOLIC ACIDOSIS [None]
  - VOMITING [None]
  - OEDEMA PERIPHERAL [None]
